FAERS Safety Report 9775362 (Version 1)
Quarter: 2013Q4

REPORT INFORMATION
  Report Type: Spontaneous
  Country: US (occurrence: None)
  Receive Date: 20131219
  Receipt Date: 20131219
  Transmission Date: 20140711
  Serious: Yes (Other)
  Sender: FDA-Public Use
  Company Number: None

PATIENT
  Age: 95 Year
  Sex: Female
  Weight: 72.58 kg

DRUGS (7)
  1. LIDODERM 5 [Suspect]
     Indication: ARTHRALGIA
     Dosage: 1 SKIN PATCH, JUST 1 PATCH FOR 24 HRS., ON THE RIGHT KNEE SKIN
     Route: 062
     Dates: start: 20100620, end: 20100621
  2. LEVOTHYROXIN [Concomitant]
  3. TYLENOL [Concomitant]
  4. DULCOLAX [Concomitant]
  5. ASPIRIN 325 MG [Concomitant]
  6. MIRALAX [Concomitant]
  7. ARICEPT [Concomitant]

REACTIONS (11)
  - Application site reaction [None]
  - Delirium [None]
  - Joint swelling [None]
  - Wound [None]
  - Wound haemorrhage [None]
  - Impaired healing [None]
  - Purulence [None]
  - Staphylococcal infection [None]
  - Pain [None]
  - Inadequate analgesia [None]
  - Ligament rupture [None]
